FAERS Safety Report 7483373-5 (Version None)
Quarter: 2011Q2

REPORT INFORMATION
  Report Type: 
  Country: None (occurrence: None)
  Receive Date: 20110517
  Receipt Date: 20100909
  Transmission Date: 20111010
  Serious: Yes (Other)
  Sender: FDA-Public Use
  Company Number: US-BAYER-201015567NA

PATIENT
  Age: 22 Year
  Sex: Female
  Weight: 56.236 kg

DRUGS (30)
  1. YASMIN [Suspect]
     Indication: CONTRACEPTION
  2. DROSPIRENONE AND ETHINYL ESTRADIOL [Suspect]
     Indication: CONTRACEPTION
     Dosage: UNK
     Dates: start: 20020101
  3. AMOXICILLIN [Concomitant]
     Dosage: 250 MG/5 ML
     Route: 048
     Dates: start: 20060329
  4. HYOSCYAMINE [Concomitant]
     Dosage: 0.375 MG, UNK
     Route: 048
     Dates: start: 20071206
  5. ASACOL [Concomitant]
     Dosage: 400 MG, UNK
     Route: 048
     Dates: start: 20071226
  6. COLESTIPOL HYDROCHLORIDE [Concomitant]
     Dosage: 1 G, UNK
     Route: 048
  7. DICYCLOMINE [Concomitant]
     Dosage: 10 MG, UNK
     Route: 048
     Dates: start: 20070706
  8. FLUCONAZOLE [Concomitant]
     Dosage: 150 MG, UNK
     Route: 048
     Dates: start: 20080502
  9. LOTRONEX [Concomitant]
     Dosage: 0.5 MG, UNK
     Route: 048
     Dates: start: 20091015
  10. CIPROFLOXACIN [Concomitant]
     Dosage: 500 MG, UNK
     Route: 048
     Dates: start: 20061017
  11. HYDROCODONE BITARTRATE AND ACETAMINOPHEN [Concomitant]
     Dosage: 7.5/500MG
     Route: 048
     Dates: start: 20080313
  12. YASMIN [Suspect]
  13. CEFADROXIL [Concomitant]
     Dosage: 500 MG, UNK
     Route: 048
     Dates: start: 20030603
  14. ZITHROMAX [Concomitant]
     Dosage: Z-PACK TABLETS
     Route: 048
     Dates: start: 20030605
  15. ZYRTEC [Concomitant]
     Dosage: 10 MG, UNK
     Route: 048
     Dates: start: 20070329
  16. AMITRIPTYLINE HCL [Concomitant]
     Dosage: 10 MG, UNK
     Route: 048
     Dates: start: 20071220
  17. PREVACID [Concomitant]
     Dosage: 30 MG, UNK
     Route: 048
     Dates: start: 20071220
  18. NEXIUM [Concomitant]
     Dosage: 40 MG, UNK
     Route: 048
     Dates: start: 20040224
  19. YASMIN [Suspect]
     Indication: PREMENSTRUAL SYNDROME
     Dosage: UNK
     Route: 048
     Dates: start: 20020101
  20. CLINDAMYCIN [Concomitant]
     Dosage: 300 MG, UNK
     Route: 048
     Dates: start: 20060206
  21. NORTRIPTYLINE HCL [Concomitant]
     Dosage: 25 MG, UNK
     Route: 048
     Dates: start: 20080212
  22. PERCOCET [Concomitant]
     Dosage: 7.5/325 MG
     Route: 048
     Dates: start: 20030603
  23. COTRIM [Concomitant]
     Dosage: 400-800 MG
     Route: 048
     Dates: start: 20061025
  24. PULMICORT [Concomitant]
     Dosage: 180 MCG
     Route: 055
     Dates: start: 20070618
  25. PEN-VEE K [Concomitant]
  26. DROSPIRENONE AND ETHINYL ESTRADIOL [Suspect]
     Indication: PREMENSTRUAL SYNDROME
  27. DROSPIRENONE AND ETHINYL ESTRADIOL [Suspect]
  28. CEPHALEXIN [Concomitant]
     Dosage: 500 MG, UNK
     Route: 048
     Dates: start: 20070412
  29. CEFDINIR [Concomitant]
     Dosage: 300 MG, UNK
     Route: 048
     Dates: start: 20080228
  30. METHYLPREDNISOLONE ACETATE [Concomitant]
     Dosage: 4 MG PAK
     Route: 048
     Dates: start: 20081107

REACTIONS (5)
  - ABDOMINAL PAIN [None]
  - GALLBLADDER DISORDER [None]
  - PROCEDURAL NAUSEA [None]
  - QUALITY OF LIFE DECREASED [None]
  - PROCEDURAL VOMITING [None]
